FAERS Safety Report 9666079 (Version 3)
Quarter: 2014Q1

REPORT INFORMATION
  Report Type: Spontaneous
  Country: US (occurrence: US)
  Receive Date: 20131104
  Receipt Date: 20140116
  Transmission Date: 20141002
  Serious: Yes (Hospitalization)
  Sender: FDA-Public Use
  Company Number: US-BIOGENIDEC-2013BI104644

PATIENT
  Age: 72 Year
  Sex: Female
  Weight: 68 kg

DRUGS (16)
  1. AVONEX [Suspect]
     Indication: MULTIPLE SCLEROSIS
     Route: 030
     Dates: start: 200612
  2. AVONEX [Suspect]
     Indication: MULTIPLE SCLEROSIS
     Route: 030
     Dates: start: 201303
  3. NEXIUIM DR [Concomitant]
     Route: 048
  4. ASPIRIN [Concomitant]
     Route: 048
  5. COZAAR [Concomitant]
     Route: 048
  6. EFFIENT [Concomitant]
     Route: 048
  7. FLAXSEED OIL [Concomitant]
     Route: 048
  8. NITROGLYCERIN [Concomitant]
     Route: 060
  9. PREMARIN [Concomitant]
     Route: 048
  10. TOPROL XL [Concomitant]
     Route: 048
  11. VITAMIN C [Concomitant]
     Route: 048
  12. VITAMIN D3 [Concomitant]
     Route: 048
  13. ZYRTEC [Concomitant]
     Route: 048
  14. TUMS [Concomitant]
  15. B12 [Concomitant]
     Route: 060
  16. MOBIC [Concomitant]
     Route: 048

REACTIONS (9)
  - Inappropriate schedule of drug administration [Unknown]
  - Fall [Unknown]
  - Wound haemorrhage [Unknown]
  - Musculoskeletal disorder [Unknown]
  - Dizziness [Unknown]
  - Muscular weakness [Unknown]
  - Coronary artery disease [Recovered/Resolved]
  - Cardiac procedure complication [Unknown]
  - Concussion [Recovered/Resolved]
